FAERS Safety Report 7000366-2 (Version None)
Quarter: 2010Q3

REPORT INFORMATION
  Report Type: 
  Country: None (occurrence: None)
  Receive Date: 20100920
  Receipt Date: 20090721
  Transmission Date: 20110219
  Serious: Yes (Other)
  Sender: FDA-Public Use
  Company Number: US-ASTRAZENECA-2007UW05861

PATIENT
  Sex: Male
  Weight: 103 kg

DRUGS (6)
  1. SEROQUEL [Suspect]
     Indication: DEPRESSION
     Route: 048
     Dates: start: 20031104
  2. PAXIL [Concomitant]
     Indication: DEPRESSION
     Dosage: ONE A DAY
     Dates: start: 20031104
  3. ELAVIL [Concomitant]
     Dates: start: 20030220
  4. LYRICA [Concomitant]
     Dates: start: 20050101
  5. ABILIFY [Concomitant]
     Dates: start: 20060522
  6. NEURONTIN [Concomitant]
     Dates: end: 20050101

REACTIONS (3)
  - DIABETES MELLITUS [None]
  - KETOACIDOSIS [None]
  - PANCREATITIS [None]
